FAERS Safety Report 11060525 (Version 3)
Quarter: 2015Q2

REPORT INFORMATION
  Report Type: Spontaneous
  Country: DE (occurrence: DE)
  Receive Date: 20150423
  Receipt Date: 20150626
  Transmission Date: 20150821
  Serious: Yes (Death, Hospitalization)
  Sender: FDA-Public Use
  Company Number: DE-ARIAD PHARMACEUTICALS, INC-2015DE004791

PATIENT

DRUGS (3)
  1. ICLUSIG [Suspect]
     Active Substance: PONATINIB
     Dosage: 30 MG, QD
     Route: 048
     Dates: start: 20140930
  2. METFORMIN [Concomitant]
     Active Substance: METFORMIN HYDROCHLORIDE
     Indication: TYPE 2 DIABETES MELLITUS
  3. ICLUSIG [Suspect]
     Active Substance: PONATINIB
     Indication: CHRONIC MYELOID LEUKAEMIA
     Dosage: 15 MG, QD
     Route: 048
     Dates: start: 20140723, end: 20140929

REACTIONS (8)
  - Haemorrhage intracranial [Fatal]
  - Thrombocytopenia [Fatal]
  - Ischaemic stroke [Fatal]
  - Renal failure [Unknown]
  - Cardiomyopathy [Unknown]
  - Cholecystitis [Unknown]
  - Sepsis [Unknown]
  - Hepatic failure [Unknown]

NARRATIVE: CASE EVENT DATE: 20150106
